FAERS Safety Report 21508816 (Version 1)
Quarter: 2022Q4

REPORT INFORMATION
  Report Type: Spontaneous
  Country: US (occurrence: US)
  Receive Date: 20221026
  Receipt Date: 20221026
  Transmission Date: 20230113
  Serious: No
  Sender: FDA-Public Use
  Company Number: US-ENDO PHARMACEUTICALS INC-2022-005058

PATIENT
  Age: 28 Year

DRUGS (3)
  1. QWO [Suspect]
     Active Substance: COLLAGENASE CLOSTRIDIUM HISTOLYTICUM-AAES
     Indication: Product used for unknown indication
     Dosage: UNK UNKNOWN, UNKNOWN (TREATMENT ONE, 24 DIMPLES, EACH DIMPLE INJECTED WITH 0.3 ML OF QWO)
     Route: 065
     Dates: start: 20220125
  2. QWO [Suspect]
     Active Substance: COLLAGENASE CLOSTRIDIUM HISTOLYTICUM-AAES
     Dosage: UNK UNKNOWN, UNKNOWN (TREATMENT TWO, 24 DIMPLES,  EACH DIMPLE INJECTED WITH 0.3 ML OF QWO))
     Route: 065
     Dates: start: 20220222
  3. QWO [Suspect]
     Active Substance: COLLAGENASE CLOSTRIDIUM HISTOLYTICUM-AAES
     Dosage: UNK UNKNOWN, UNKNOWN (TREATMENT THREE, 22 DIMPLES,  EACH DIMPLE INJECTED WITH 0.3 ML OF QWO))
     Route: 065
     Dates: start: 20220322

REACTIONS (3)
  - Contusion [Unknown]
  - Skin discolouration [Unknown]
  - Inappropriate schedule of product administration [Unknown]

NARRATIVE: CASE EVENT DATE: 20220101
